FAERS Safety Report 7495808-2 (Version None)
Quarter: 2011Q2

REPORT INFORMATION
  Report Type: 
  Country: None (occurrence: None)
  Receive Date: 20110523
  Receipt Date: 20110513
  Transmission Date: 20111010
  Serious: Yes (Hospitalization)
  Sender: FDA-Public Use
  Company Number: AU-AMGEN-AUSCT2011018359

PATIENT
  Age: 58 Year
  Sex: Male

DRUGS (11)
  1. TEMAZ [Concomitant]
     Dosage: 10 MG, QD
     Route: 048
     Dates: start: 20110104
  2. FLUOROURACIL [Concomitant]
  3. PANTOPRAZOLE [Concomitant]
     Dosage: 40 MG, QD
     Route: 048
     Dates: start: 20101101
  4. DOCETAXEL [Concomitant]
  5. ENDONE [Concomitant]
     Dosage: 5 MG, PRN
     Route: 048
     Dates: start: 20110104
  6. CHLORPROMAZINE HCL [Concomitant]
     Dosage: 50 MG, TID
     Route: 048
     Dates: start: 20110116, end: 20110127
  7. METOCLOPRAMIDE [Concomitant]
     Dosage: 10 MG, QD
     Route: 048
     Dates: start: 20110104
  8. LORAZEPAM [Concomitant]
     Dosage: 0.5 MG, BID
     Route: 048
     Dates: start: 20110104
  9. CISPLATIN [Concomitant]
  10. PANITUMUMAB [Suspect]
     Indication: GASTROOESOPHAGEAL CANCER
     Dosage: 540 MG, Q4WK
     Route: 042
     Dates: start: 20110110
  11. OXYCONTIN [Concomitant]
     Dosage: 20 MG, BID
     Route: 048
     Dates: start: 20110106, end: 20110122

REACTIONS (4)
  - FEBRILE NEUTROPENIA [None]
  - DECREASED APPETITE [None]
  - DIARRHOEA [None]
  - VOMITING [None]
